FAERS Safety Report 6767290-1 (Version None)
Quarter: 2010Q2

REPORT INFORMATION
  Report Type: 
  Country: None (occurrence: None)
  Receive Date: 20100611
  Receipt Date: 20100611
  Transmission Date: 20101027
  Serious: Yes (Hospitalization)
  Sender: FDA-Public Use
  Company Number: None

PATIENT
  Age: 22 Year
  Sex: Female
  Weight: 65.7716 kg

DRUGS (1)
  1. VEREGEN [Suspect]
     Indication: ANOGENITAL WARTS
     Dosage: TOPICAL TID TOP
     Route: 061
     Dates: start: 20100526, end: 20100606

REACTIONS (6)
  - APPLICATION SITE DISCHARGE [None]
  - APPLICATION SITE INFLAMMATION [None]
  - APPLICATION SITE PAIN [None]
  - APPLICATION SITE SWELLING [None]
  - APPLICATION SITE ULCER [None]
  - OEDEMA GENITAL [None]
